FAERS Safety Report 4438899-5 (Version None)
Quarter: 2004Q3

REPORT INFORMATION
  Report Type: 
  Country: None (occurrence: None)
  Receive Date: 20040831
  Receipt Date: 20040818
  Transmission Date: 20050211
  Serious: No
  Sender: FDA-Public Use
  Company Number: 2004GB01743

PATIENT
  Age: 65 Year
  Sex: Male
  Weight: 95 kg

DRUGS (16)
  1. CRESTOR [Suspect]
     Indication: HYPERCHOLESTEROLAEMIA
     Dosage: 40 MG QD PO
     Route: 048
     Dates: start: 20030922, end: 20040714
  2. CRESTOR [Suspect]
     Indication: HYPERCHOLESTEROLAEMIA
     Dosage: 20 MG, QD PO
     Route: 048
     Dates: start: 20040715
  3. LISINOPRIL [Suspect]
     Indication: DIABETIC NEPHROPATHY
     Dosage: 40 MG DAILY PO
     Route: 048
     Dates: start: 19990427, end: 20040714
  4. LISINOPRIL [Suspect]
     Indication: DIABETIC NEPHROPATHY
     Dosage: 30 MG DAILY PO
     Route: 048
     Dates: start: 20040715
  5. ATORVASTATIN [Concomitant]
  6. FENOFIBRATE [Concomitant]
  7. DILTIAZEM XL [Concomitant]
  8. MESALAMINE [Concomitant]
  9. ASPIRIN DISP [Concomitant]
  10. BENDROFLUAZIDE [Concomitant]
  11. BETAHISTINE [Concomitant]
  12. DIHYDROCODEINE [Concomitant]
  13. DOXAZOSIN MR [Concomitant]
  14. INSULIN GLARGINE [Concomitant]
  15. METFORMIN HCL [Concomitant]
  16. RABEPRAZOLE SODIUM [Concomitant]

REACTIONS (1)
  - BLOOD POTASSIUM INCREASED [None]
